FAERS Safety Report 12251141 (Version 1)
Quarter: 2016Q2

REPORT INFORMATION
  Report Type: Spontaneous
  Country: US (occurrence: US)
  Receive Date: 20160410
  Receipt Date: 20160410
  Transmission Date: 20160815
  Serious: No
  Sender: FDA-Public Use
  Company Number: US-JNJFOC-20160226832

PATIENT
  Age: 15 Year
  Sex: Male

DRUGS (8)
  1. ZONISAMIDE. [Concomitant]
     Active Substance: ZONISAMIDE
     Indication: SEIZURE
     Dosage: BEDTIME
     Route: 065
     Dates: start: 2010
  2. INVEGA [Suspect]
     Active Substance: PALIPERIDONE
     Indication: AUTISM
     Dosage: BEDTIME
     Route: 048
  3. INVEGA [Suspect]
     Active Substance: PALIPERIDONE
     Indication: AUTISM
     Dosage: BEDTIME
     Route: 048
  4. CYPROHEPTADINE. [Concomitant]
     Active Substance: CYPROHEPTADINE
     Indication: MIGRAINE
     Dosage: BEDTIME
     Route: 065
     Dates: start: 2010
  5. CLONIDINE. [Concomitant]
     Active Substance: CLONIDINE
     Indication: SLEEP DISORDER
     Dosage: BEDTIME
     Route: 065
     Dates: start: 2012
  6. NEXIUM [Concomitant]
     Active Substance: ESOMEPRAZOLE MAGNESIUM
     Dosage: BEDTIME
     Route: 065
     Dates: start: 2012
  7. DESMOPRESSIN [Concomitant]
     Active Substance: DESMOPRESSIN
     Indication: ENURESIS
     Dosage: BEDTIME
     Route: 065
     Dates: start: 2012
  8. SERTRALINE [Concomitant]
     Active Substance: SERTRALINE HYDROCHLORIDE
     Indication: DEPRESSION
     Dosage: BEDTIME
     Route: 065
     Dates: start: 2014

REACTIONS (6)
  - Underdose [Unknown]
  - Drug ineffective [Unknown]
  - Off label use [Unknown]
  - Product use issue [Unknown]
  - Abnormal behaviour [Not Recovered/Not Resolved]
  - Disturbance in social behaviour [Unknown]

NARRATIVE: CASE EVENT DATE: 201511
